FAERS Safety Report 13709466 (Version 4)
Quarter: 2017Q3

REPORT INFORMATION
  Report Type: Report from Study
  Country: None (occurrence: LU)
  Receive Date: 20170703
  Receipt Date: 20170821
  Transmission Date: 20171127
  Serious: Yes (Death, Hospitalization)
  Sender: FDA-Public Use
  Company Number: LU-ABBVIE-17K-098-2026389-00

PATIENT
  Age: 65 Year
  Sex: Male

DRUGS (4)
  1. DUODOPA [Suspect]
     Active Substance: CARBIDOPA\LEVODOPA
     Indication: PARKINSON^S DISEASE
     Dosage: MD=2ML??CD=4ML/HR DURING 16HRS ??EDA=1.5ML??ND=2.7ML/HR DURING 8HRS
     Route: 050
     Dates: start: 20100930, end: 20101208
  2. DUODOPA [Suspect]
     Active Substance: CARBIDOPA\LEVODOPA
     Dosage: MD=1ML??CD=4.4ML/HR DURING 16HRS ??EDA=2ML??ND=3.3ML/HR DURING 8HRS
     Route: 050
     Dates: start: 20130704, end: 20170703
  3. DUODOPA [Suspect]
     Active Substance: CARBIDOPA\LEVODOPA
     Dosage: MD=1ML?CD=4.6ML/HR DURING 16HRS?EDA=2ML?ND=3.3ML/HR DURING 8HRS
     Route: 050
     Dates: start: 20170703
  4. DUODOPA [Suspect]
     Active Substance: CARBIDOPA\LEVODOPA
     Dosage: DOSES CONTINUOUSLY MONITORED AND ADAPTE
     Route: 050
     Dates: start: 20101208, end: 20130704

REACTIONS (8)
  - Pneumonia [Unknown]
  - Death [Fatal]
  - Affective disorder [Unknown]
  - Hypophagia [Unknown]
  - Complication associated with device [Unknown]
  - Pulmonary congestion [Unknown]
  - General physical health deterioration [Unknown]
  - Aggression [Unknown]

NARRATIVE: CASE EVENT DATE: 201708
